FAERS Safety Report 7849845-6 (Version None)
Quarter: 2011Q4

REPORT INFORMATION
  Report Type: 
  Country: None (occurrence: None)
  Receive Date: 20111021
  Receipt Date: 20111011
  Transmission Date: 20120403
  Serious: Yes (Hospitalization)
  Sender: FDA-Public Use
  Company Number: 1078316

PATIENT
  Age: 40 Year
  Sex: Female

DRUGS (3)
  1. METHOTREXATE [Suspect]
     Indication: PSORIASIS
     Dosage: 10 MG WEEKLY
  2. INFLIXIMAB [Suspect]
     Indication: PSORIASIS
     Dosage: GRADUALLY BEEN INCREASED TO 8 MG/KG
  3. PREDNISONE [Suspect]
     Indication: PSORIASIS
     Dosage: 10 MG ON ALTERNATE DAYS

REACTIONS (15)
  - HISTOPLASMOSIS [None]
  - ATELECTASIS [None]
  - PLEURAL EFFUSION [None]
  - ARTHRALGIA [None]
  - LEUKOPENIA [None]
  - DEHYDRATION [None]
  - RENAL FAILURE [None]
  - OROPHARYNGEAL PAIN [None]
  - HYPERCALCAEMIA [None]
  - FATIGUE [None]
  - HYPOCHROMIC ANAEMIA [None]
  - PYREXIA [None]
  - BLOOD 25-HYDROXYCHOLECALCIFEROL DECREASED [None]
  - WHITE BLOOD CELL COUNT DECREASED [None]
  - COUGH [None]
